FAERS Safety Report 7111505-7 (Version None)
Quarter: 2010Q4

REPORT INFORMATION
  Report Type: 
  Country: None (occurrence: None)
  Receive Date: 20101118
  Receipt Date: 20101115
  Transmission Date: 20110411
  Serious: Yes (Other)
  Sender: FDA-Public Use
  Company Number: JP-BRACCO-003584

PATIENT
  Sex: Male

DRUGS (5)
  1. IOPAMIDOL [Suspect]
     Indication: UROGRAM
     Route: 042
     Dates: start: 20100524, end: 20100524
  2. IOPAMIDOL [Suspect]
     Indication: BLADDER CANCER
     Route: 042
     Dates: start: 20100524, end: 20100524
  3. ADALAT [Concomitant]
     Indication: HYPERTENSION
     Route: 048
     Dates: end: 20100531
  4. TAKEPRON [Concomitant]
     Indication: REFLUX OESOPHAGITIS
     Route: 048
  5. 8-HOUR BAYER [Concomitant]
     Indication: CEREBROVASCULAR ACCIDENT PROPHYLAXIS
     Route: 048

REACTIONS (3)
  - BLOOD PRESSURE DECREASED [None]
  - DECREASED APPETITE [None]
  - ERYTHEMA MULTIFORME [None]
